FAERS Safety Report 7328678-3 (Version None)
Quarter: 2011Q1

REPORT INFORMATION
  Report Type: 
  Country: None (occurrence: None)
  Receive Date: 20110222
  Receipt Date: 20110214
  Transmission Date: 20110831
  Serious: Yes (Other)
  Sender: FDA-Public Use
  Company Number: 2011SP001785

PATIENT
  Age: 38 Year
  Sex: Female

DRUGS (2)
  1. PUREGON (FOLLITROPIN BETA /01348901/) [Suspect]
     Indication: PRODUCT USED FOR UNKNOWN INDICATION
     Dosage: 150 IU;
     Dates: start: 20110107, end: 20110110
  2. DECAPEPTYL [Concomitant]

REACTIONS (7)
  - FLUID RETENTION [None]
  - VISION BLURRED [None]
  - TACHYCARDIA [None]
  - WEIGHT INCREASED [None]
  - HYPERTENSION [None]
  - MALAISE [None]
  - PALPITATIONS [None]
